FAERS Safety Report 4828151-8 (Version None)
Quarter: 2005Q4

REPORT INFORMATION
  Report Type: 
  Country: None (occurrence: None)
  Receive Date: 20051110
  Receipt Date: 20051103
  Transmission Date: 20060501
  Serious: Yes (Disabling)
  Sender: FDA-Public Use
  Company Number: HQWYE400812SEP05

PATIENT
  Age: 64 Year
  Sex: Male

DRUGS (5)
  1. CORDARONE [Suspect]
     Indication: ATRIAL FIBRILLATION
     Dosage: 200 MG TABLET, ORAL
     Route: 048
     Dates: start: 19970501, end: 20010101
  2. METOPROLOL SUCCINATE [Concomitant]
  3. MARCUMAR [Concomitant]
  4. NOVOTHYRAL (LEVOTHYROXINE SODIUM/LIOTHYRONINE SODIUM) [Concomitant]
  5. TRIARESE (HYDROCHLOROTHIAZIDE/TRIAMTERENE) [Concomitant]

REACTIONS (8)
  - BALANCE DISORDER [None]
  - DEPRESSIVE SYMPTOM [None]
  - MUSCLE ATROPHY [None]
  - PERFORMANCE STATUS DECREASED [None]
  - PHOTOSENSITIVITY REACTION [None]
  - POLYNEUROPATHY [None]
  - SKIN DISCOLOURATION [None]
  - VISUAL DISTURBANCE [None]
